FAERS Safety Report 6657317-X (Version None)
Quarter: 2010Q1

REPORT INFORMATION
  Report Type: 
  Country: None (occurrence: None)
  Receive Date: 20100330
  Receipt Date: 20100319
  Transmission Date: 20100710
  Serious: Yes (Hospitalization)
  Sender: FDA-Public Use
  Company Number: US-JNJFOC-20100209858

PATIENT
  Sex: Female
  Weight: 55.34 kg

DRUGS (3)
  1. REMICADE [Suspect]
     Indication: RHEUMATOID ARTHRITIS
     Route: 042
  2. REMICADE [Suspect]
     Route: 042
  3. ANTIHISTAMINES [Concomitant]
     Indication: ANAPHYLACTIC REACTION
     Dosage: 20 YEARS

REACTIONS (4)
  - MUSCULOSKELETAL STIFFNESS [None]
  - NEURALGIA [None]
  - PARAESTHESIA [None]
  - RASH [None]
